FAERS Safety Report 25869087 (Version 2)
Quarter: 2025Q4

REPORT INFORMATION
  Report Type: Spontaneous
  Country: US (occurrence: US)
  Receive Date: 20251001
  Receipt Date: 20251111
  Transmission Date: 20260117
  Serious: No
  Sender: TAKEDA
  Company Number: US-TAKEDA-2025TUS083925

PATIENT
  Sex: Female

DRUGS (3)
  1. VYVANSE [Suspect]
     Active Substance: LISDEXAMFETAMINE DIMESYLATE
     Indication: Attention deficit hyperactivity disorder
     Dosage: 70 MILLIGRAM, QD
  2. XANAX [Concomitant]
     Active Substance: ALPRAZOLAM
     Indication: Panic attack
     Dosage: UNK
  3. LEXAPRO [Concomitant]
     Active Substance: ESCITALOPRAM OXALATE
     Indication: Depression
     Dosage: UNK

REACTIONS (2)
  - Therapeutic product effect decreased [Unknown]
  - Product physical issue [Unknown]
